FAERS Safety Report 18533896 (Version 1)
Quarter: 2020Q4

REPORT INFORMATION
  Report Type: Spontaneous
  Country: US (occurrence: US)
  Receive Date: 20201122
  Receipt Date: 20201122
  Transmission Date: 20210114
  Serious: Yes (Other)
  Sender: FDA-Public Use
  Company Number: None

PATIENT
  Age: 81 Year
  Sex: Female
  Weight: 59.85 kg

DRUGS (11)
  1. ESTRACE [Concomitant]
     Active Substance: ESTRADIOL
  2. OXYBUTININ [Concomitant]
     Active Substance: OXYBUTYNIN
  3. CRANBERRY CAPSULE [Concomitant]
     Active Substance: DIETARY SUPPLEMENT
  4. BIOTIN [Concomitant]
     Active Substance: BIOTIN
  5. BIOTIN [Concomitant]
     Active Substance: BIOTIN
  6. ZYRTEX [Concomitant]
  7. VITAMIN B12 [Concomitant]
     Active Substance: CYANOCOBALAMIN
  8. VYTORIN [Concomitant]
     Active Substance: EZETIMIBE\SIMVASTATIN
  9. ESTRADIOL VAGINAL [Suspect]
     Active Substance: ESTRADIOL
     Indication: INFECTION PROPHYLAXIS
     Dosage: ?          QUANTITY:1 1 GRAM IN SYRINGE;
     Route: 067
     Dates: start: 20201026, end: 20201121
  10. LEXAPRO [Concomitant]
     Active Substance: ESCITALOPRAM OXALATE
  11. TRAZODONE [Concomitant]
     Active Substance: TRAZODONE HYDROCHLORIDE

REACTIONS (3)
  - Product substitution issue [None]
  - Genital pain [None]
  - Vulvovaginal pruritus [None]

NARRATIVE: CASE EVENT DATE: 20201121
